FAERS Safety Report 10030672 (Version 2)
Quarter: 2014Q1

REPORT INFORMATION
  Report Type: Spontaneous
  Country: US (occurrence: US)
  Receive Date: 20140323
  Receipt Date: 20140323
  Transmission Date: 20141002
  Serious: No
  Sender: FDA-Public Use
  Company Number: US-ALLERGAN-1319766US

PATIENT
  Age: 35 Year
  Sex: Female

DRUGS (1)
  1. LATISSE 0.03% [Suspect]
     Indication: GROWTH OF EYELASHES

REACTIONS (5)
  - Eyelid skin dryness [Recovered/Resolved]
  - Skin fissures [Recovered/Resolved]
  - Pain of skin [Recovered/Resolved]
  - Eyelid irritation [Recovered/Resolved]
  - Eyelid oedema [Recovered/Resolved]
